FAERS Safety Report 17401034 (Version 1)
Quarter: 2020Q1

REPORT INFORMATION
  Report Type: Spontaneous
  Country: US (occurrence: US)
  Receive Date: 20200127
  Receipt Date: 20200127
  Transmission Date: 20200409
  Serious: Yes (Hospitalization)
  Sender: FDA-Public Use
  Company Number: None

PATIENT
  Age: 4 Day
  Sex: Male

DRUGS (1)
  1. VITAMIN K [Suspect]
     Active Substance: PHYTONADIONE

REACTIONS (1)
  - Jaundice [None]

NARRATIVE: CASE EVENT DATE: 20181004
